FAERS Safety Report 5195643-4 (Version None)
Quarter: 2007Q1

REPORT INFORMATION
  Report Type: 
  Country: None (occurrence: None)
  Receive Date: 20070102
  Receipt Date: 20061219
  Transmission Date: 20070707
  Serious: Yes (Congenital Anomaly)
  Sender: FDA-Public Use
  Company Number: DE-BRISTOL-MYERS SQUIBB COMPANY-13280102

PATIENT
  Age: 26 Year
  Sex: Female

DRUGS (2)
  1. CARBIDOPA + LEVODOPA [Suspect]
     Indication: DYSTONIA
     Dates: start: 19940101
  2. CITALOPRAM HYDROBROMIDE [Suspect]

REACTIONS (2)
  - GASTROINTESTINAL DISORDER CONGENITAL [None]
  - PREGNANCY [None]
